FAERS Safety Report 19412672 (Version 1)
Quarter: 2021Q2

REPORT INFORMATION
  Report Type: Spontaneous
  Country: CA (occurrence: CA)
  Receive Date: 20210614
  Receipt Date: 20210614
  Transmission Date: 20210717
  Serious: Yes (Life-Threatening)
  Sender: FDA-Public Use
  Company Number: CA-ACCORD-228227

PATIENT
  Sex: Female

DRUGS (1)
  1. PACLITAXEL/PACLITAXEL LIPOSOME [Suspect]
     Active Substance: PACLITAXEL
     Indication: CHEMOTHERAPY
     Dosage: LIQUID INTRAVENOUS
     Route: 065

REACTIONS (4)
  - Anaphylactoid reaction [Unknown]
  - Angioedema [Unknown]
  - Blood pressure systolic decreased [Unknown]
  - Heart rate abnormal [Unknown]
